FAERS Safety Report 9476676 (Version 1)
Quarter: 2013Q3

REPORT INFORMATION
  Report Type: Spontaneous
  Country: US (occurrence: US)
  Receive Date: 20130826
  Receipt Date: 20130826
  Transmission Date: 20140515
  Serious: No
  Sender: FDA-Public Use
  Company Number: US-BRISTOL-MYERS SQUIBB COMPANY-19040849

PATIENT
  Age: 2 Year
  Sex: Male
  Weight: 10.88 kg

DRUGS (1)
  1. KENALOG INJ [Suspect]
     Indication: UPPER RESPIRATORY TRACT INFECTION

REACTIONS (1)
  - Skin atrophy [Recovering/Resolving]
